FAERS Safety Report 19463370 (Version 1)
Quarter: 2021Q2

REPORT INFORMATION
  Report Type: Spontaneous
  Country: FI (occurrence: FI)
  Receive Date: 20210625
  Receipt Date: 20210625
  Transmission Date: 20210717
  Serious: Yes (Life-Threatening)
  Sender: FDA-Public Use
  Company Number: FI-ASTRAZENECA-2021A562233

PATIENT
  Age: 33 Year
  Sex: Female

DRUGS (1)
  1. KETIPINOR [Suspect]
     Active Substance: QUETIAPINE FUMARATE
     Route: 065

REACTIONS (1)
  - Deep vein thrombosis [Recovering/Resolving]

NARRATIVE: CASE EVENT DATE: 20210610
